FAERS Safety Report 8433399-X (Version None)
Quarter: 2012Q2

REPORT INFORMATION
  Report Type: 
  Country: None (occurrence: None)
  Receive Date: 20120323
  Receipt Date: 20110827
  Transmission Date: 20120825
  Serious: Yes (Other)
  Sender: FDA-Public Use
  Company Number: 163-21880-11083262

PATIENT
  Age: 68 Year
  Sex: Female

DRUGS (3)
  1. REVLIMID [Suspect]
     Indication: MULTIPLE MYELOMA
     Dosage: 15 MG, 1 IN 1 D, PO 5 MG, 1 IN 1 D, PO 10 MG, M,W,F AFTER DIALYSIS, PO
     Route: 048
     Dates: start: 20100201
  2. REVLIMID [Suspect]
     Indication: MULTIPLE MYELOMA
     Dosage: 15 MG, 1 IN 1 D, PO 5 MG, 1 IN 1 D, PO 10 MG, M,W,F AFTER DIALYSIS, PO
     Route: 048
     Dates: start: 20101101
  3. REVLIMID [Suspect]
     Indication: MULTIPLE MYELOMA
     Dosage: 15 MG, 1 IN 1 D, PO 5 MG, 1 IN 1 D, PO 10 MG, M,W,F AFTER DIALYSIS, PO
     Route: 048
     Dates: start: 20110601

REACTIONS (2)
  - MYOCARDIAL INFARCTION [None]
  - LOCALISED INFECTION [None]
